FAERS Safety Report 25805430 (Version 2)
Quarter: 2025Q4

REPORT INFORMATION
  Report Type: Spontaneous
  Country: JP (occurrence: JP)
  Receive Date: 20250916
  Receipt Date: 20251009
  Transmission Date: 20260117
  Serious: Yes (Other)
  Sender: CSL BEHRING
  Company Number: JP-BEH-2025218135

PATIENT
  Age: 11 Year
  Sex: Male

DRUGS (19)
  1. HUMAN IMMUNOGLOBULIN G [Suspect]
     Active Substance: HUMAN IMMUNOGLOBULIN G
     Indication: Immunoglobulin therapy
     Route: 042
  2. SULFAMETHOXAZOLE AND TRIMETHOPRIM [Concomitant]
     Active Substance: SULFAMETHOXAZOLE\TRIMETHOPRIM
     Indication: Combined immunodeficiency
     Route: 048
  3. SULFAMETHOXAZOLE AND TRIMETHOPRIM [Concomitant]
     Active Substance: SULFAMETHOXAZOLE\TRIMETHOPRIM
     Indication: Prophylaxis
  4. VALGANCICLOVIR [Concomitant]
     Active Substance: VALGANCICLOVIR
     Indication: Cytomegalovirus chorioretinitis
     Route: 048
  5. VALGANCICLOVIR [Concomitant]
     Active Substance: VALGANCICLOVIR
     Indication: Cytomegalovirus hepatitis
  6. PIPERACILLIN SODIUM\TAZOBACTAM SODIUM [Concomitant]
     Active Substance: PIPERACILLIN SODIUM\TAZOBACTAM SODIUM
  7. VORICONAZOLE [Concomitant]
     Active Substance: VORICONAZOLE
  8. GANCICLOVIR [Concomitant]
     Active Substance: GANCICLOVIR
     Indication: Cytomegalovirus chorioretinitis
     Dosage: UNK
  9. CLARITHROMYCIN [Concomitant]
     Active Substance: CLARITHROMYCIN
  10. AMPICILLIN AND SULBACTAM [Concomitant]
     Active Substance: AMPICILLIN SODIUM\SULBACTAM SODIUM
  11. FOSCARNET [Concomitant]
     Active Substance: FOSCARNET
     Indication: Cytomegalovirus chorioretinitis
     Dosage: UNK
  12. ETOPOSIDE [Concomitant]
     Active Substance: ETOPOSIDE
     Indication: Preoperative care
     Dosage: 150 MG/M2, QD
  13. FLUDARABINE [Concomitant]
     Active Substance: FLUDARABINE PHOSPHATE
     Indication: Preoperative care
     Dosage: 30 MG/M2, QD
  14. MELPHALAN [Concomitant]
     Active Substance: MELPHALAN
     Indication: Preoperative care
     Dosage: 35 MG/M2, QD
  15. TACROLIMUS [Concomitant]
     Active Substance: TACROLIMUS
     Indication: Prophylaxis against graft versus host disease
  16. TACROLIMUS [Concomitant]
     Active Substance: TACROLIMUS
     Indication: Prophylaxis against graft versus host disease
  17. CYCLOPHOSPHAMIDE [Concomitant]
     Active Substance: CYCLOPHOSPHAMIDE
     Indication: Prophylaxis against graft versus host disease
     Dosage: UNK
  18. MYCOPHENOLATE MOFETIL [Concomitant]
     Active Substance: MYCOPHENOLATE MOFETIL
     Indication: Prophylaxis against graft versus host disease
  19. MYCOPHENOLATE MOFETIL [Concomitant]
     Active Substance: MYCOPHENOLATE MOFETIL
     Indication: Prophylaxis against graft versus host disease

REACTIONS (16)
  - Cytomegalovirus chorioretinitis [Unknown]
  - Cytomegalovirus hepatitis [Unknown]
  - Bronchiectasis [Unknown]
  - Pneumonia cytomegaloviral [Unknown]
  - Seizure [Unknown]
  - Acute graft versus host disease in intestine [Unknown]
  - Chronic graft versus host disease in skin [Unknown]
  - Cystitis haemorrhagic [Unknown]
  - Epstein-Barr viraemia [Unknown]
  - Pyrexia [Unknown]
  - Lymphadenopathy [Unknown]
  - Wheezing [Unknown]
  - Clubbing [Unknown]
  - Mixed obstructive and restrictive lung disease [Unknown]
  - Bronchitis chronic [Unknown]
  - Chronic sinusitis [Unknown]
